FAERS Safety Report 7587373-6 (Version None)
Quarter: 2011Q3

REPORT INFORMATION
  Report Type: 
  Country: None (occurrence: None)
  Receive Date: 20110701
  Receipt Date: 20110627
  Transmission Date: 20111222
  Serious: Yes (Life-Threatening, Hospitalization)
  Sender: FDA-Public Use
  Company Number: TR-ASTRAZENECA-2011SE37795

PATIENT
  Age: 71 Year
  Sex: Male
  Weight: 78 kg

DRUGS (2)
  1. CASODEX [Suspect]
     Indication: PROSTATE CANCER
     Route: 048
     Dates: start: 20110605, end: 20110621
  2. ZOLADEX [Suspect]
     Indication: PROSTATE CANCER
     Route: 058
     Dates: start: 20110620

REACTIONS (4)
  - CEREBROVASCULAR OPERATION [None]
  - PITUITARY HAEMORRHAGE [None]
  - PITUITARY TUMOUR BENIGN [None]
  - VOMITING [None]
